FAERS Safety Report 7052210-5 (Version None)
Quarter: 2010Q4

REPORT INFORMATION
  Report Type: 
  Country: None (occurrence: None)
  Receive Date: 20101013
  Receipt Date: 20100928
  Transmission Date: 20110411
  Serious: Yes (Death)
  Sender: FDA-Public Use
  Company Number: 1000016664

PATIENT
  Age: 41 Year
  Sex: Female
  Weight: 128 kg

DRUGS (3)
  1. CITALOPRAM HYDROBROMIDE [Suspect]
     Dosage: 10 MG
  2. TOPIRAMATE [Suspect]
  3. FLUNITRAZEPAM (FLUNITRAZEPAM) [Suspect]

REACTIONS (9)
  - ANGIOPATHY [None]
  - ASPIRATION [None]
  - BRAIN OEDEMA [None]
  - DRUG TOXICITY [None]
  - HEPATIC NECROSIS [None]
  - PULMONARY OEDEMA [None]
  - RESPIRATORY DEPRESSION [None]
  - SHOCK [None]
  - UNRESPONSIVE TO STIMULI [None]
